FAERS Safety Report 21023711 (Version 4)
Quarter: 2022Q4

REPORT INFORMATION
  Report Type: Spontaneous
  Country: US (occurrence: US)
  Receive Date: 20220629
  Receipt Date: 20221021
  Transmission Date: 20230113
  Serious: Yes (Death, Hospitalization)
  Sender: FDA-Public Use
  Company Number: US-KARYOPHARM-2022KPT000712

PATIENT

DRUGS (13)
  1. XPOVIO [Suspect]
     Active Substance: SELINEXOR
     Indication: Plasma cell myeloma
     Dosage: 60 MG, WEEKLY
     Route: 048
     Dates: start: 20220618, end: 202207
  2. HYDROMORPHONE [Concomitant]
     Active Substance: HYDROMORPHONE
  3. OXYCODONE [Concomitant]
     Active Substance: OXYCODONE
  4. LACTULOSE [Concomitant]
     Active Substance: LACTULOSE
  5. ALLOPURINOL [Concomitant]
     Active Substance: ALLOPURINOL
  6. METOPROLOL TARTRATE [Concomitant]
     Active Substance: METOPROLOL TARTRATE
  7. ONDANSETRON [Concomitant]
     Active Substance: ONDANSETRON
  8. ACYCLOVIR [Concomitant]
     Active Substance: ACYCLOVIR
  9. FAMOTIDINE [Concomitant]
     Active Substance: FAMOTIDINE
  10. OLANZAPINE [Concomitant]
     Active Substance: OLANZAPINE
  11. BACTRIM DS [Concomitant]
     Active Substance: SULFAMETHOXAZOLE\TRIMETHOPRIM
  12. DEXAMETHASONE [Concomitant]
     Active Substance: DEXAMETHASONE
  13. NORTRIPTYLINE [Concomitant]
     Active Substance: NORTRIPTYLINE

REACTIONS (4)
  - Death [Fatal]
  - Metastases to central nervous system [Unknown]
  - Nausea [Recovering/Resolving]
  - Treatment noncompliance [Unknown]

NARRATIVE: CASE EVENT DATE: 20220101
